FAERS Safety Report 25866105 (Version 2)
Quarter: 2025Q4

REPORT INFORMATION
  Report Type: Spontaneous
  Country: US (occurrence: US)
  Receive Date: 20250930
  Receipt Date: 20251009
  Transmission Date: 20260118
  Serious: Yes (Other)
  Sender: ABBVIE
  Company Number: US-ABBVIE-6482215

PATIENT
  Age: 51 Year
  Sex: Female
  Weight: 74.842 kg

DRUGS (2)
  1. SYNTHROID [Suspect]
     Active Substance: LEVOTHYROXINE SODIUM
     Indication: Thyroid disorder
     Route: 048
     Dates: start: 2004, end: 2016
  2. SYNTHROID [Suspect]
     Active Substance: LEVOTHYROXINE SODIUM
     Indication: Thyroid disorder
     Dosage: FORM STRENGTH: 25 MICROGRAMS
     Route: 048
     Dates: start: 20250909

REACTIONS (24)
  - Haemangioma [Not Recovered/Not Resolved]
  - Transient ischaemic attack [Recovered/Resolved]
  - Feeding disorder [Recovered/Resolved]
  - Blood cholesterol increased [Not Recovered/Not Resolved]
  - Alopecia [Recovering/Resolving]
  - Gastrointestinal injury [Recovered/Resolved]
  - Photophobia [Recovered/Resolved]
  - Rotator cuff syndrome [Not Recovered/Not Resolved]
  - Weight abnormal [Unknown]
  - Fluid intake reduced [Recovered/Resolved]
  - Cardiac disorder [Unknown]
  - Tremor [Not Recovered/Not Resolved]
  - Weight increased [Not Recovered/Not Resolved]
  - Fatigue [Recovering/Resolving]
  - Blood pressure increased [Not Recovered/Not Resolved]
  - Headache [Recovered/Resolved]
  - Sleep disorder [Recovering/Resolving]
  - Blindness transient [Unknown]
  - Injury [Recovered/Resolved]
  - Speech disorder [Recovered/Resolved]
  - Musculoskeletal disorder [Unknown]
  - Endocrine disorder [Unknown]
  - Limb injury [Unknown]
  - Head injury [Unknown]

NARRATIVE: CASE EVENT DATE: 20150101
